FAERS Safety Report 9272225 (Version 1)
Quarter: 2013Q2

REPORT INFORMATION
  Report Type: Spontaneous
  Country: PT (occurrence: PT)
  Receive Date: 20130506
  Receipt Date: 20130506
  Transmission Date: 20140414
  Serious: Yes (Other)
  Sender: FDA-Public Use
  Company Number: PT-JNJFOC-20130405491

PATIENT
  Age: 58 Year
  Sex: Female

DRUGS (6)
  1. REMICADE [Suspect]
     Indication: ANKYLOSING SPONDYLITIS
     Route: 042
  2. REMICADE [Suspect]
     Indication: ANKYLOSING SPONDYLITIS
     Route: 042
     Dates: end: 20130318
  3. PARACETAMOL [Concomitant]
     Route: 065
  4. NOROXIN [Concomitant]
     Route: 065
  5. TRIDURAL [Concomitant]
     Route: 065
  6. AMITRIPTYLINE [Concomitant]
     Dosage: ADT 25
     Route: 065

REACTIONS (3)
  - Hypothyroidism [Unknown]
  - Haemorrhage [Unknown]
  - Drug ineffective [Unknown]
